FAERS Safety Report 21738060 (Version 1)
Quarter: 2022Q4

REPORT INFORMATION
  Report Type: Report from Study
  Country: US (occurrence: US)
  Receive Date: 20221216
  Receipt Date: 20221216
  Transmission Date: 20230113
  Serious: No
  Sender: FDA-Public Use
  Company Number: US-ABBVIE-4188262

PATIENT
  Sex: Female

DRUGS (1)
  1. SKYRIZI [Suspect]
     Active Substance: RISANKIZUMAB-RZAA
     Indication: Psoriasis
     Dosage: SKYRIZI START DATE- SEP 2022; FORM STRENGTH: 150; FREQUENCY: 150MG WEEK 0, WEEK 4 AND THEN EVERY ...
     Route: 058

REACTIONS (1)
  - Rhinorrhoea [Unknown]

NARRATIVE: CASE EVENT DATE: 20220101
